FAERS Safety Report 12248756 (Version 4)
Quarter: 2016Q4

REPORT INFORMATION
  Report Type: Spontaneous
  Country: US (occurrence: US)
  Receive Date: 20160408
  Receipt Date: 20161216
  Transmission Date: 20170207
  Serious: Yes (Hospitalization)
  Sender: FDA-Public Use
  Company Number: US-RARE DISEASE THERAPEUTICS, INC.-1050363

PATIENT
  Age: 56 Year
  Sex: Female
  Weight: 57.15 kg

DRUGS (13)
  1. LIPITOR [Concomitant]
     Active Substance: ATORVASTATIN CALCIUM
     Dates: start: 200001
  2. VITAMIN C [Concomitant]
     Active Substance: ASCORBIC ACID
     Dates: start: 200001
  3. CALCIUM [Concomitant]
     Active Substance: CALCIUM
     Dates: start: 200907
  4. AGGRENOX [Concomitant]
     Active Substance: ASPIRIN\DIPYRIDAMOLE
     Dates: start: 1998
  5. VITAMIN D [Concomitant]
     Active Substance: CHOLECALCIFEROL
     Dates: start: 200907
  6. CLARITIN [Concomitant]
     Active Substance: LORATADINE
     Dates: start: 20160719
  7. MAGNESIUM [Concomitant]
     Active Substance: MAGNESIUM
     Dates: start: 200907
  8. DEMEROL [Concomitant]
     Active Substance: MEPERIDINE HYDROCHLORIDE
     Dates: start: 201001
  9. PROBIOTIC [Concomitant]
     Active Substance: PROBIOTICS NOS
     Dates: start: 20160719
  10. CYSTADANE [Suspect]
     Active Substance: BETAINE
     Indication: METHYLENETETRAHYDROFOLATE REDUCTASE DEFICIENCY
     Route: 048
     Dates: start: 20150326
  11. FOLIC ACID. [Concomitant]
     Active Substance: FOLIC ACID
     Dates: start: 1998
  12. MULTIVITAMIN [Concomitant]
     Active Substance: VITAMINS
     Dates: start: 1997
  13. SINGULAIR [Concomitant]
     Active Substance: MONTELUKAST SODIUM
     Dates: start: 200607

REACTIONS (2)
  - Transient ischaemic attack [Recovered/Resolved]
  - Underdose [Unknown]

NARRATIVE: CASE EVENT DATE: 20160201
